FAERS Safety Report 7401122-3 (Version None)
Quarter: 2011Q2

REPORT INFORMATION
  Report Type: 
  Country: None (occurrence: None)
  Receive Date: 20110407
  Receipt Date: 20110404
  Transmission Date: 20111010
  Serious: Yes (Other)
  Sender: FDA-Public Use
  Company Number: US-BAYER-2011-029604

PATIENT
  Sex: Female

DRUGS (3)
  1. YASMIN [Suspect]
     Dosage: UNK
     Dates: start: 20060101, end: 20100101
  2. YAZ [Suspect]
     Dosage: UNK
     Dates: start: 20060101, end: 20100101
  3. OCELLA [Suspect]
     Dosage: UNK
     Dates: start: 20060101, end: 20100101

REACTIONS (4)
  - PAIN [None]
  - TRANSIENT ISCHAEMIC ATTACK [None]
  - INJURY [None]
  - EMOTIONAL DISTRESS [None]
